FAERS Safety Report 9749454 (Version 2)
Quarter: 2013Q4

REPORT INFORMATION
  Report Type: Spontaneous
  Country: BR (occurrence: BR)
  Receive Date: 20131212
  Receipt Date: 20131217
  Transmission Date: 20140711
  Serious: Yes (Other)
  Sender: FDA-Public Use
  Company Number: BR-PFIZER INC-2013349293

PATIENT
  Age: 74 Year
  Sex: Female

DRUGS (3)
  1. OLMETEC HCT [Suspect]
     Dosage: UNK
  2. OLMETEC [Suspect]
     Indication: HYPERTENSION
     Dosage: 40 MG, DAILY
     Route: 048
     Dates: start: 2010
  3. NORVASC [Suspect]
     Indication: HYPERTENSION
     Dosage: 5 MG, DAILY
     Route: 048
     Dates: start: 2010

REACTIONS (2)
  - Road traffic accident [Recovered/Resolved]
  - Upper limb fracture [Not Recovered/Not Resolved]
